FAERS Safety Report 19415830 (Version 1)
Quarter: 2021Q2

REPORT INFORMATION
  Report Type: Spontaneous
  Country: JP (occurrence: JP)
  Receive Date: 20210615
  Receipt Date: 20210615
  Transmission Date: 20210717
  Serious: Yes (Hospitalization, Other)
  Sender: FDA-Public Use
  Company Number: NVSJ2021JP008622

PATIENT
  Age: 28 Year
  Sex: Female

DRUGS (2)
  1. CYCLOSPORINE. [Suspect]
     Active Substance: CYCLOSPORINE
     Indication: ALLOGENIC STEM CELL TRANSPLANTATION
     Dosage: 200 MG
     Route: 048
  2. CYCLOSPORINE. [Suspect]
     Active Substance: CYCLOSPORINE
     Dosage: DOSE REDUCED
     Route: 048

REACTIONS (7)
  - Palpitations [Recovering/Resolving]
  - Thyroid pain [Unknown]
  - Goitre [Unknown]
  - Epstein-Barr virus infection reactivation [Unknown]
  - Thyroiditis subacute [Unknown]
  - Pyrexia [Recovering/Resolving]
  - Diarrhoea [Unknown]
